FAERS Safety Report 10179615 (Version 1)
Quarter: 2014Q2

REPORT INFORMATION
  Report Type: Spontaneous
  Country: US (occurrence: US)
  Receive Date: 20140519
  Receipt Date: 20140519
  Transmission Date: 20141212
  Serious: No
  Sender: FDA-Public Use
  Company Number: US-PFIZER INC-2014134004

PATIENT
  Age: 82 Year
  Sex: Female

DRUGS (9)
  1. FLAGYL [Suspect]
     Dosage: UNK
  2. NAPROSYN [Suspect]
     Dosage: UNK
  3. DEMEROL [Suspect]
     Dosage: UNK
  4. MAXZIDE [Suspect]
     Dosage: UNK
  5. DARVON [Suspect]
     Dosage: UNK
  6. DARVOCET-N 100 [Suspect]
     Dosage: UNK
  7. CODEINE [Suspect]
     Dosage: UNK
  8. TRIAMTERENE [Suspect]
     Dosage: UNK
  9. BACTRIM DS [Suspect]
     Dosage: UNK

REACTIONS (1)
  - Drug hypersensitivity [Unknown]
